FAERS Safety Report 4473092-1 (Version None)
Quarter: 2004Q4

REPORT INFORMATION
  Report Type: 
  Country: None (occurrence: None)
  Receive Date: 20041013
  Receipt Date: 20040921
  Transmission Date: 20050328
  Serious: Yes (Death, Hospitalization, Other)
  Sender: FDA-Public Use
  Company Number: PHRM2004FR02852

PATIENT
  Age: 84 Year
  Sex: Male

DRUGS (2)
  1. LAMISIL [Suspect]
     Indication: NAIL TINEA
     Dosage: 250 MG, QD
     Route: 048
     Dates: start: 20040503, end: 20040512
  2. DIGOXIN [Concomitant]
     Indication: ARRHYTHMIA
     Dosage: .125 MG, QD
     Route: 048
     Dates: start: 20010615, end: 20040512

REACTIONS (17)
  - ABDOMINAL PAIN UPPER [None]
  - ABDOMINAL TENDERNESS [None]
  - ALANINE AMINOTRANSFERASE INCREASED [None]
  - ANOREXIA [None]
  - ASPARTATE AMINOTRANSFERASE INCREASED [None]
  - COAGULATION FACTOR V LEVEL DECREASED [None]
  - FATIGUE [None]
  - GENERAL PHYSICAL HEALTH DETERIORATION [None]
  - HEPATIC FAILURE [None]
  - HEPATITIS FULMINANT [None]
  - ILEUS [None]
  - LIPASE ABNORMAL [None]
  - NEUTROPHIL PERCENTAGE INCREASED [None]
  - PANCREATITIS ACUTE [None]
  - PROTHROMBIN TIME SHORTENED [None]
  - VOMITING [None]
  - WHITE BLOOD CELL COUNT INCREASED [None]
